FAERS Safety Report 16877106 (Version 1)
Quarter: 2019Q4

REPORT INFORMATION
  Report Type: Report from Study
  Country: US (occurrence: US)
  Receive Date: 20191002
  Receipt Date: 20191002
  Transmission Date: 20200122
  Serious: Yes (Other)
  Sender: FDA-Public Use
  Company Number: US-JNJFOC-20190939016

PATIENT
  Age: 61 Year
  Sex: Male

DRUGS (1)
  1. IMBRUVICA [Suspect]
     Active Substance: IBRUTINIB
     Indication: CENTRAL NERVOUS SYSTEM LYMPHOMA
     Dosage: 420 MG, QD
     Route: 048
     Dates: start: 20190509

REACTIONS (2)
  - Unresponsive to stimuli [Unknown]
  - Disorientation [Unknown]

NARRATIVE: CASE EVENT DATE: 20190923
